FAERS Safety Report 4823465-X (Version None)
Quarter: 2005Q4

REPORT INFORMATION
  Report Type: 
  Country: None (occurrence: None)
  Receive Date: 20051107
  Receipt Date: 20051103
  Transmission Date: 20060501
  Serious: Yes (Death)
  Sender: FDA-Public Use
  Company Number: 2005S1005539

PATIENT
  Age: 45 Year
  Sex: Male

DRUGS (12)
  1. CLOZAPINE [Suspect]
     Indication: SCHIZOPHRENIA, PARANOID TYPE
     Dosage: 25 MG;HS;PO
     Route: 048
     Dates: start: 20030515, end: 20050601
  2. CLOZAPINE [Suspect]
     Indication: SCHIZOPHRENIA, PARANOID TYPE
     Dosage: 200 MG; HS; PO
     Route: 048
     Dates: start: 20030515, end: 20050601
  3. ESCITALOPRAM OXALATE [Concomitant]
  4. CLONAZEPAM [Concomitant]
  5. TRIHEXYPHENIDYL HYDROCHLORIDE [Concomitant]
  6. CHLORPROMAZINE HCL [Concomitant]
  7. SIMVASTATIN [Concomitant]
  8. LISINOPRIL [Concomitant]
  9. METROPROLOL SUCCINATE [Concomitant]
  10. ASPIRIN [Concomitant]
  11. PANTOPRAZOLE [Concomitant]
  12. GLYCERYL TRINITRATE [Concomitant]

REACTIONS (1)
  - MYOCARDIAL INFARCTION [None]
